FAERS Safety Report 5979904-4 (Version None)
Quarter: 2008Q4

REPORT INFORMATION
  Report Type: 
  Country: None (occurrence: None)
  Receive Date: 20081205
  Receipt Date: 20080606
  Transmission Date: 20090506
  Serious: Yes (Death, Other)
  Sender: FDA-Public Use
  Company Number: FR-BAYER-200819693GPV

PATIENT
  Age: 75 Year
  Sex: Female

DRUGS (2)
  1. LEPIRUDIN [Suspect]
     Indication: HEPARIN-INDUCED THROMBOCYTOPENIA
     Route: 065
     Dates: start: 20080424, end: 20080514
  2. ORGARAN [Concomitant]
     Indication: HEPARIN-INDUCED THROMBOCYTOPENIA
     Dates: start: 20080515

REACTIONS (5)
  - DRUG LEVEL INCREASED [None]
  - HAEMORRHAGE [None]
  - HAEMORRHAGIC ANAEMIA [None]
  - RENAL FAILURE ACUTE [None]
  - SEPTIC SHOCK [None]
